FAERS Safety Report 7296502-3 (Version None)
Quarter: 2011Q1

REPORT INFORMATION
  Report Type: 
  Country: None (occurrence: None)
  Receive Date: 20110216
  Receipt Date: 20110203
  Transmission Date: 20110831
  Serious: Yes (Hospitalization, Disabling, Other)
  Sender: FDA-Public Use
  Company Number: PHHY2010JP58684

PATIENT
  Sex: Male
  Weight: 72 kg

DRUGS (19)
  1. AFINITOR [Suspect]
     Dosage: 10 MG, DAILY
     Route: 048
     Dates: start: 20101004
  2. PROPADERM [Concomitant]
     Dosage: UNK
  3. AFINITOR [Suspect]
     Dosage: 2.5 MG, DAILY
     Route: 048
     Dates: start: 20100816, end: 20100818
  4. TECELEUKIN [Concomitant]
     Indication: METASTATIC RENAL CELL CARCINOMA
     Dosage: 700000 DF, UNK
     Dates: start: 20090217, end: 20090615
  5. ACTOS [Concomitant]
     Dosage: 15 MG, UNK
     Route: 048
  6. MITIGLINIDE [Concomitant]
     Dosage: UNK
     Route: 048
  7. OLMETEC [Concomitant]
     Dosage: 40 MG
     Route: 048
  8. CELTECT [Concomitant]
     Dosage: 60 MG, DAILY
     Dates: start: 20100726, end: 20100830
  9. INTERFERON ALFA [Concomitant]
     Indication: METASTATIC RENAL CELL CARCINOMA
     Dosage: 5000000 DF, UNK
     Dates: start: 20090105, end: 20090615
  10. GLYMESASON [Concomitant]
     Dosage: UNK
  11. NOVORAPID [Concomitant]
     Indication: BLOOD GLUCOSE INCREASED
     Dosage: 18 UNITS DAILY
     Route: 058
     Dates: start: 20100706
  12. TOWARAT [Concomitant]
     Dosage: 20 MG
     Route: 048
  13. CELTECT [Concomitant]
     Indication: ECZEMA
     Dosage: 60 MG
     Route: 048
     Dates: start: 20100604, end: 20100620
  14. SORAFENIB TOSILATE [Concomitant]
     Indication: METASTATIC RENAL CELL CARCINOMA
     Dosage: 800 MG
     Route: 048
     Dates: start: 20090619, end: 20100523
  15. TRANSAMIN [Concomitant]
     Dosage: 500 MG
     Route: 048
     Dates: start: 20100604, end: 20100620
  16. AFINITOR [Suspect]
     Dosage: 5 MG, DAILY
     Route: 048
     Dates: start: 20100721, end: 20100815
  17. LANTUS [Concomitant]
     Indication: BLOOD GLUCOSE INCREASED
     Dosage: 14 UNTIS DAILY
     Dates: start: 20100706
  18. AFINITOR [Suspect]
     Indication: METASTATIC RENAL CELL CARCINOMA
     Dosage: 10 MG, DAILY
     Route: 048
     Dates: start: 20100524, end: 20100712
  19. GLIMICRON [Concomitant]
     Dosage: 40 MG
     Route: 048

REACTIONS (2)
  - BLOOD GLUCOSE INCREASED [None]
  - ECZEMA [None]
